FAERS Safety Report 10258862 (Version 2)
Quarter: 2014Q2

REPORT INFORMATION
  Report Type: Spontaneous
  Country: US (occurrence: US)
  Receive Date: 20140625
  Receipt Date: 20140625
  Transmission Date: 20141212
  Serious: Yes (Other)
  Sender: FDA-Public Use
  Company Number: US-ASTELLAS-2013US007821

PATIENT
  Sex: Female

DRUGS (2)
  1. VESICARE [Suspect]
     Indication: PRODUCT USED FOR UNKNOWN INDICATION
     Dosage: 10 MG, DAILY
     Route: 048
     Dates: start: 201208
  2. VESICARE [Suspect]
     Dosage: 5 MG, DAILY
     Route: 048
     Dates: start: 201401

REACTIONS (3)
  - Urinary tract infection [Not Recovered/Not Resolved]
  - Dry mouth [Unknown]
  - Constipation [Unknown]
